FAERS Safety Report 5096809-4 (Version None)
Quarter: 2006Q3

REPORT INFORMATION
  Report Type: 
  Country: None (occurrence: None)
  Receive Date: 20060831
  Receipt Date: 20060818
  Transmission Date: 20061208
  Serious: Yes (Other)
  Sender: FDA-Public Use
  Company Number: 2006101237

PATIENT
  Sex: Female

DRUGS (1)
  1. HALCION [Suspect]
     Indication: DRUG USE FOR UNKNOWN INDICATION
     Dosage: 0.25 MG , ORAL
     Route: 048

REACTIONS (13)
  - AMNESIA [None]
  - ASTHENIA [None]
  - COORDINATION ABNORMAL [None]
  - DIARRHOEA [None]
  - DIZZINESS [None]
  - DRUG WITHDRAWAL SYNDROME [None]
  - DYSAESTHESIA [None]
  - DYSGEUSIA [None]
  - INSOMNIA [None]
  - MOUTH HAEMORRHAGE [None]
  - NIGHTMARE [None]
  - SPEECH DISORDER [None]
  - TINNITUS [None]
